FAERS Safety Report 4456985-0 (Version None)
Quarter: 2004Q3

REPORT INFORMATION
  Report Type: 
  Country: None (occurrence: None)
  Receive Date: 20040923
  Receipt Date: 20040915
  Transmission Date: 20050211
  Serious: Yes (Hospitalization)
  Sender: FDA-Public Use
  Company Number: JP-BRISTOL-MYERS SQUIBB COMPANY-12703393

PATIENT
  Age: 64 Year
  Sex: Male

DRUGS (2)
  1. TAXOL [Suspect]
     Indication: LUNG NEOPLASM MALIGNANT
     Dosage: THERAPY DATES: 23-JUN TO 01-SEP-2004
     Route: 042
     Dates: start: 20040901, end: 20040901
  2. PARAPLATIN [Suspect]
     Indication: LUNG NEOPLASM MALIGNANT
     Dosage: THERAPY DATES: 23-JUN TO 01-SEP-2004
     Route: 042
     Dates: start: 20040901, end: 20040901

REACTIONS (1)
  - INTERSTITIAL LUNG DISEASE [None]
